FAERS Safety Report 17902820 (Version 1)
Quarter: 2020Q2

REPORT INFORMATION
  Report Type: Spontaneous
  Country: CA (occurrence: CA)
  Receive Date: 20200616
  Receipt Date: 20200616
  Transmission Date: 20200714
  Serious: Yes (Death)
  Sender: FDA-Public Use
  Company Number: CA-PFIZER INC-2020157958

PATIENT
  Age: 63 Year
  Sex: Female

DRUGS (3)
  1. XELJANZ [Suspect]
     Active Substance: TOFACITINIB CITRATE
     Indication: RHEUMATOID ARTHRITIS
     Dosage: 5 MG, 2X/DAY
     Route: 048
     Dates: start: 20200204, end: 20200426
  2. PREDNISONE. [Concomitant]
     Active Substance: PREDNISONE
     Dosage: 10 MG, 2X/DAY
     Route: 065
     Dates: start: 20191201
  3. PREDNISONE. [Concomitant]
     Active Substance: PREDNISONE
     Dosage: WEANING OFF
     Dates: start: 202002

REACTIONS (4)
  - Death [Fatal]
  - Condition aggravated [Unknown]
  - Therapeutic product effect incomplete [Unknown]
  - Dyspnoea [Unknown]

NARRATIVE: CASE EVENT DATE: 202005
